FAERS Safety Report 17961889 (Version 1)
Quarter: 2020Q2

REPORT INFORMATION
  Report Type: Spontaneous
  Country: US (occurrence: US)
  Receive Date: 20200629
  Receipt Date: 20200629
  Transmission Date: 20200714
  Serious: No
  Sender: FDA-Public Use
  Company Number: None

PATIENT
  Age: 66 Year
  Sex: Male
  Weight: 88 kg

DRUGS (1)
  1. INSULIN (INSULIN, ASPART, HUMAN 100 UNT/ML INJ) [Suspect]
     Active Substance: INSULIN ASPART
     Indication: DIABETES MELLITUS
     Dosage: ?          OTHER STRENGTH:100 UNT/INJ;?

REACTIONS (2)
  - Wrong technique in product usage process [None]
  - Hypoglycaemia [None]

NARRATIVE: CASE EVENT DATE: 20200225
